FAERS Safety Report 7550408-0 (Version None)
Quarter: 2011Q2

REPORT INFORMATION
  Report Type: 
  Country: None (occurrence: None)
  Receive Date: 20110615
  Receipt Date: 20110607
  Transmission Date: 20111010
  Serious: Yes (Death)
  Sender: FDA-Public Use
  Company Number: DK-GILEAD-2010-0032637

PATIENT
  Age: 38 Year
  Sex: Male
  Weight: 68 kg

DRUGS (10)
  1. HUMAN ALBUMINE [Concomitant]
  2. EFAVIRENZ/EMTRICITABINE/TENOFOVIR DISOPROXIL FUMARATE [Suspect]
     Indication: HIV INFECTION
     Route: 048
     Dates: start: 20100820, end: 20100910
  3. RITONAVIR [Suspect]
     Indication: HIV INFECTION
     Route: 048
     Dates: start: 20100910, end: 20100912
  4. MEROPENEM [Concomitant]
  5. DARUNAVIR ETHANOLATE [Suspect]
     Indication: HIV INFECTION
     Route: 048
     Dates: start: 20100910, end: 20100912
  6. ZINACEF [Concomitant]
  7. PREDNISOLONE [Concomitant]
  8. POTASSIUM ELIXIR [Concomitant]
  9. ABACAVIR SULFATE AND LAMIVUDINE [Suspect]
     Indication: HIV INFECTION
     Route: 048
     Dates: start: 20100910, end: 20100912
  10. PANTOPRAZOLE SODIUM [Concomitant]

REACTIONS (1)
  - BONE MARROW FAILURE [None]
